FAERS Safety Report 21855408 (Version 1)
Quarter: 2023Q1

REPORT INFORMATION
  Report Type: Report from Study
  Country: DE (occurrence: DE)
  Receive Date: 20230112
  Receipt Date: 20230112
  Transmission Date: 20230418
  Serious: Yes (Death, Life-Threatening, Hospitalization)
  Sender: FDA-Public Use
  Company Number: DE-MYLANLABS-08P-062-0435895-00

PATIENT
  Age: 53 Year
  Sex: Male

DRUGS (18)
  1. PANTOPRAZOLE [Suspect]
     Active Substance: PANTOPRAZOLE
     Indication: Prophylaxis
     Dosage: 40 MILLIGRAM, QD, INTRAGASTRAL, DAILY DOSE:
     Route: 048
     Dates: start: 20040813
  2. DIMETHINDENE MALEATE [Suspect]
     Active Substance: DIMETHINDENE MALEATE
     Indication: Rhinitis allergic
     Dosage: UNK UNK, QD
     Route: 048
     Dates: start: 20040817
  3. CLONIDINE [Suspect]
     Active Substance: CLONIDINE
     Indication: Alcohol withdrawal syndrome
     Dosage: INTRAGASTRAL
     Route: 048
     Dates: start: 20040813
  4. CLONIDINE [Suspect]
     Active Substance: CLONIDINE
     Indication: Alcohol abuse
     Dosage: 450 MILLIGRAM, QD
     Route: 065
     Dates: start: 20040813
  5. CLONIDINE [Suspect]
     Active Substance: CLONIDINE
     Dosage: 1350 MILLIGRAM, QD, DAILY DOSE: 1350 MG MILLIGRAM
     Route: 065
     Dates: start: 20040813
  6. PREDNISONE [Suspect]
     Active Substance: PREDNISONE
     Indication: Rash
     Dosage: 60 MILLIGRAM, QD, INTRAGASTRAL
     Route: 048
     Dates: start: 20040904
  7. ALBUTEROL [Suspect]
     Active Substance: ALBUTEROL
     Indication: Chronic obstructive pulmonary disease
     Dosage: 2 DOSAGE FORM, QD, DOSE QUANTITY: 2
     Route: 065
     Dates: start: 20040813, end: 20040905
  8. AQUAPHOR [Suspect]
     Active Substance: PETROLATUM
     Indication: Essential hypertension
     Dosage: INTRAGASTRAL
     Route: 048
  9. AQUAPHOR [Suspect]
     Active Substance: PETROLATUM
     Indication: Hypertension
     Dosage: 160 MILLIGRAM, QD, DAILY DOSE: 160 MG MILLIGRAM
     Route: 065
     Dates: start: 20040813
  10. SPIRONOLACTONE [Suspect]
     Active Substance: SPIRONOLACTONE
     Indication: Polyuria
     Dosage: INTRAGASTRAL
     Route: 048
     Dates: start: 20040813
  11. SPIRONOLACTONE [Suspect]
     Active Substance: SPIRONOLACTONE
     Dosage: 400 MILLIGRAM, QD, DAILY DOSE: 400 MG MILLIGRAM
     Route: 065
     Dates: start: 20040813
  12. SPIRONOLACTONE [Suspect]
     Active Substance: SPIRONOLACTONE
     Dosage: 200 MILLIGRAM, QD, DAILY DOSE: 200 MG MILLIGRA
     Route: 065
     Dates: start: 20040813
  13. ALLOPURINOL [Suspect]
     Active Substance: ALLOPURINOL
     Indication: Hyperuricaemia
     Dosage: 100MILLIGRAMQD
     Route: 048
     Dates: start: 20040905
  14. ALLOPURINOL [Suspect]
     Active Substance: ALLOPURINOL
     Indication: Purine metabolism disorder
  15. ALLOPURINOL [Suspect]
     Active Substance: ALLOPURINOL
     Indication: Hyperuricaemia
  16. ALLOPURINOL [Suspect]
     Active Substance: ALLOPURINOL
     Indication: Ill-defined disorder
  17. ALLOPURINOL [Suspect]
     Active Substance: ALLOPURINOL
     Indication: Acquired pyrimidine metabolism disorder
  18. FLUTICASONE PROPIONATE\SALMETEROL XINAFOATE [Suspect]
     Active Substance: FLUTICASONE PROPIONATE\SALMETEROL XINAFOATE
     Indication: Chronic obstructive pulmonary disease
     Dosage: 2 DOSAGE FORM, QD, DAILY DOSE: 2 DF DOSAGE FOR
     Route: 065
     Dates: start: 20040816

REACTIONS (12)
  - Toxic epidermal necrolysis [Fatal]
  - Mouth ulceration [Fatal]
  - Pruritus [Fatal]
  - Lip erosion [Fatal]
  - Macule [Fatal]
  - Pain of skin [Fatal]
  - Oral mucosa erosion [Fatal]
  - Pyrexia [Fatal]
  - Nikolsky^s sign [Fatal]
  - Conjunctivitis [Fatal]
  - Erythema [Fatal]
  - Blister [Fatal]

NARRATIVE: CASE EVENT DATE: 20040904
